FAERS Safety Report 9499773 (Version 7)
Quarter: 2013Q4

REPORT INFORMATION
  Report Type: Spontaneous
  Country: US (occurrence: US)
  Receive Date: 20130905
  Receipt Date: 20131003
  Transmission Date: 20140711
  Serious: Yes (Hospitalization)
  Sender: FDA-Public Use
  Company Number: US-JNJFOC-20130816707

PATIENT
  Age: 86 Year
  Sex: Male

DRUGS (1)
  1. XARELTO [Suspect]
     Indication: PROTEIN S DEFICIENCY
     Route: 048

REACTIONS (2)
  - Subarachnoid haemorrhage [Unknown]
  - Fall [Unknown]
